FAERS Safety Report 5796523-3 (Version None)
Quarter: 2008Q3

REPORT INFORMATION
  Report Type: 
  Country: None (occurrence: None)
  Receive Date: 20080701
  Receipt Date: 20080613
  Transmission Date: 20090109
  Serious: Yes (Other)
  Sender: FDA-Public Use
  Company Number: US-JNJFOC-20060401989

PATIENT
  Sex: Male

DRUGS (9)
  1. RISPERDAL [Suspect]
     Indication: SCHIZOAFFECTIVE DISORDER
     Route: 065
  2. SEROQUEL [Suspect]
     Indication: SCHIZOAFFECTIVE DISORDER
  3. LAMICTAL [Concomitant]
     Route: 065
  4. LITHIUM CARBONATE [Concomitant]
  5. ZOCOR [Concomitant]
     Route: 065
  6. AVANDAMET [Concomitant]
     Route: 065
  7. METOPROLOL SUCCINATE [Concomitant]
     Route: 065
  8. NORVASC [Concomitant]
     Route: 065
  9. SYNTHROID [Concomitant]
     Route: 065

REACTIONS (2)
  - DIABETES MELLITUS [None]
  - WEIGHT INCREASED [None]
